FAERS Safety Report 8093190-3 (Version None)
Quarter: 2012Q1

REPORT INFORMATION
  Report Type: 
  Country: None (occurrence: None)
  Receive Date: 20120131
  Receipt Date: 20120120
  Transmission Date: 20120608
  Serious: Yes (Other)
  Sender: FDA-Public Use
  Company Number: US-ELI_LILLY_AND_COMPANY-US201201006813

PATIENT
  Sex: Female

DRUGS (2)
  1. LANTUS [Concomitant]
     Dosage: UNK
  2. HUMALOG [Suspect]
     Indication: TYPE 2 DIABETES MELLITUS
     Dosage: 14 U, TID

REACTIONS (5)
  - CARDIAC OPERATION [None]
  - INCORRECT DOSE ADMINISTERED [None]
  - HYPOACUSIS [None]
  - SURGERY [None]
  - LIMB OPERATION [None]
